FAERS Safety Report 19651541 (Version 1)
Quarter: 2021Q3

REPORT INFORMATION
  Report Type: Spontaneous
  Country: US (occurrence: US)
  Receive Date: 20210803
  Receipt Date: 20210803
  Transmission Date: 20211014
  Serious: No
  Sender: FDA-Public Use
  Company Number: US-DRREDDYS-SPO/USA/21/0138289

PATIENT
  Age: 39 Year
  Sex: Male
  Weight: 79.2 kg

DRUGS (4)
  1. NICOTINE POLACRILEX [Concomitant]
     Active Substance: NICOTINE
     Indication: PRODUCT USED FOR UNKNOWN INDICATION
  2. MULTIVITAMINS [Concomitant]
     Active Substance: VITAMINS
     Indication: PRODUCT USED FOR UNKNOWN INDICATION
  3. VITAMIN D [Concomitant]
     Active Substance: VITAMIN D NOS
     Indication: PRODUCT USED FOR UNKNOWN INDICATION
  4. HABITROL [Suspect]
     Active Substance: NICOTINE
     Indication: TOBACCO USER
     Route: 062
     Dates: start: 2021, end: 20210723

REACTIONS (6)
  - Application site erythema [Unknown]
  - Application site vesicles [Unknown]
  - Product adhesion issue [Unknown]
  - Application site pain [Unknown]
  - Application site irritation [Unknown]
  - Wrong technique in product usage process [Unknown]
